FAERS Safety Report 17070121 (Version 1)
Quarter: 2019Q4

REPORT INFORMATION
  Report Type: Spontaneous
  Country: FR (occurrence: FR)
  Receive Date: 20191125
  Receipt Date: 20191125
  Transmission Date: 20200122
  Serious: Yes (Hospitalization, Other)
  Sender: FDA-Public Use
  Company Number: FR-ACCORD-161876

PATIENT
  Age: 48 Year
  Sex: Female
  Weight: 70 kg

DRUGS (3)
  1. ARIPIPRAZOLE. [Suspect]
     Active Substance: ARIPIPRAZOLE
     Route: 048
     Dates: start: 20190312, end: 20190312
  2. BRINTELLIX [Suspect]
     Active Substance: VORTIOXETINE HYDROBROMIDE
     Dosage: STRENGTH: 10 MG
     Route: 048
     Dates: start: 20190312, end: 20190312
  3. TARDYFERON [Suspect]
     Active Substance: FERROUS SULFATE
     Dosage: STRENGTH: 80 MG
     Route: 048
     Dates: start: 20190312, end: 20190312

REACTIONS (3)
  - Poisoning deliberate [Unknown]
  - Somnolence [Recovered/Resolved]
  - Hypothermia [Recovered/Resolved]

NARRATIVE: CASE EVENT DATE: 20190312
